FAERS Safety Report 6424600-2 (Version None)
Quarter: 2009Q4

REPORT INFORMATION
  Report Type: 
  Country: None (occurrence: None)
  Receive Date: 20091103
  Receipt Date: 20091027
  Transmission Date: 20100525
  Serious: Yes (Death, Other)
  Sender: FDA-Public Use
  Company Number: PHHY2009JP43524

PATIENT
  Sex: Male
  Weight: 57 kg

DRUGS (5)
  1. ICL670A ICL+DISTAB [Suspect]
     Indication: IRON OVERLOAD
     Dosage: 1250 MG, QD
     Route: 048
     Dates: start: 20080709
  2. NEORAL [Suspect]
     Indication: APLASTIC ANAEMIA
     Dosage: 50 MG, QD
     Route: 048
  3. BAKTAR [Concomitant]
     Dosage: 1 DF, UNK
     Route: 048
     Dates: start: 20080709
  4. DIFLUCAN [Concomitant]
     Dosage: 100 MG, UNK
     Route: 048
     Dates: start: 20080709
  5. PRIMOBOLAN [Concomitant]
     Dosage: 20 MG, UNK
     Route: 048
     Dates: start: 20080709

REACTIONS (2)
  - PULMONARY ALVEOLAR HAEMORRHAGE [None]
  - RENAL IMPAIRMENT [None]
